FAERS Safety Report 4408834-4 (Version None)
Quarter: 2004Q3

REPORT INFORMATION
  Report Type: 
  Country: None (occurrence: None)
  Receive Date: 20040727
  Receipt Date: 20040526
  Transmission Date: 20050211
  Serious: Yes (Other)
  Sender: FDA-Public Use
  Company Number: PHEH2004US05800

PATIENT
  Age: 59 Year
  Sex: Male

DRUGS (5)
  1. DIOVAN HCT [Suspect]
     Indication: HYPERTENSION
     Dosage: 1 DF, QD
     Route: 048
     Dates: start: 20040201
  2. GLUCOSAMINE [Concomitant]
  3. VITAMIN C [Concomitant]
  4. VITAMIN E [Concomitant]
  5. ASPIRIN [Concomitant]

REACTIONS (3)
  - CARDIAC FLUTTER [None]
  - HEART RATE IRREGULAR [None]
  - PALPITATIONS [None]
